FAERS Safety Report 9766092 (Version 1)
Quarter: 2013Q4

REPORT INFORMATION
  Report Type: Spontaneous
  Country: US (occurrence: US)
  Receive Date: 20131217
  Receipt Date: 20131217
  Transmission Date: 20140711
  Serious: No
  Sender: FDA-Public Use
  Company Number: US-GLAXOSMITHKLINE-A1018400A

PATIENT
  Age: 78 Year
  Sex: Male

DRUGS (4)
  1. VOTRIENT [Suspect]
     Indication: PRODUCT USED FOR UNKNOWN INDICATION
     Dosage: 800MG PER DAY
     Route: 048
  2. PERCOCET [Concomitant]
     Route: 048
  3. NEURONTIN [Concomitant]
     Route: 048
  4. PROZAC [Concomitant]
     Route: 048

REACTIONS (1)
  - Syncope [Unknown]
